FAERS Safety Report 5516110-1 (Version None)
Quarter: 2007Q4

REPORT INFORMATION
  Report Type: 
  Country: None (occurrence: None)
  Receive Date: 20071114
  Receipt Date: 20061213
  Transmission Date: 20080405
  Serious: No
  Sender: FDA-Public Use
  Company Number: A0631284A

PATIENT
  Age: 23 Year
  Sex: Male

DRUGS (1)
  1. COMMIT [Suspect]
     Dates: start: 20061211, end: 20061211

REACTIONS (4)
  - COLD SWEAT [None]
  - HEART RATE IRREGULAR [None]
  - PALPITATIONS [None]
  - TREMOR [None]
